FAERS Safety Report 9163283 (Version 1)
Quarter: 2013Q1

REPORT INFORMATION
  Report Type: Spontaneous
  Country: GB (occurrence: GB)
  Receive Date: 20130314
  Receipt Date: 20130314
  Transmission Date: 20140127
  Serious: Yes (Other)
  Sender: FDA-Public Use
  Company Number: GB-GLAXOSMITHKLINE-B0873879A

PATIENT
  Age: 25 Year
  Sex: Male

DRUGS (4)
  1. TROBALT [Suspect]
     Indication: EPILEPSY
     Route: 065
     Dates: start: 201208, end: 201212
  2. LAMOTRIGINE [Concomitant]
  3. ZONEGRAN [Concomitant]
  4. CLOBAZAM [Concomitant]

REACTIONS (4)
  - Seizure cluster [Unknown]
  - Hallucination [Unknown]
  - Paraesthesia [Unknown]
  - Anxiety [Unknown]
